FAERS Safety Report 8249130 (Version 4)
Quarter: 2013Q2

REPORT INFORMATION
  Report Type: Report from Study
  Country: US (occurrence: US)
  Receive Date: 20111117
  Receipt Date: 20130408
  Transmission Date: 20140414
  Serious: Yes (Hospitalization, Other)
  Sender: FDA-Public Use
  Company Number: US-ACTELION-A-US2010-41505

PATIENT
  Age: 65 Year
  Sex: Male

DRUGS (3)
  1. TRACLEER [Suspect]
     Indication: PULMONARY HYPERTENSION
     Dosage: 62.5 MG, BID
     Route: 048
     Dates: start: 20061215
  2. REVATIO [Concomitant]
  3. PLAVIX [Concomitant]
     Dosage: 75 MG, UNK

REACTIONS (11)
  - Cardio-respiratory arrest [Unknown]
  - Pulmonary oedema [Unknown]
  - Acute myocardial infarction [Recovering/Resolving]
  - Chronic obstructive pulmonary disease [Recovering/Resolving]
  - Coronary angioplasty [Recovering/Resolving]
  - Dysphagia [Unknown]
  - Cardiac failure congestive [Recovering/Resolving]
  - Dyspnoea [Recovering/Resolving]
  - Fluid retention [Unknown]
  - Chest pain [Recovering/Resolving]
  - Swelling [Recovering/Resolving]
